FAERS Safety Report 10922808 (Version 1)
Quarter: 2015Q1

REPORT INFORMATION
  Report Type: Other
  Country: IT (occurrence: IT)
  Receive Date: 20150317
  Receipt Date: 20150317
  Transmission Date: 20150721
  Serious: Yes (Other)
  Sender: FDA-Public Use
  Company Number: IT-MYLANLABS-2015M1007811

PATIENT

DRUGS (4)
  1. VEPESID [Suspect]
     Active Substance: ETOPOSIDE
     Indication: NEUROENDOCRINE CARCINOMA
     Dosage: 160 MG, CYCLE
     Route: 042
     Dates: start: 20140604
  2. CISPLATIN. [Suspect]
     Active Substance: CISPLATIN
     Indication: NEUROENDOCRINE CARCINOMA
     Dosage: 45 MG, CYCLE
     Route: 042
     Dates: start: 20140604
  3. CISPLATIN. [Suspect]
     Active Substance: CISPLATIN
     Dosage: 45 MG, CYCLE
     Route: 042
     Dates: start: 20141011
  4. VEPESID [Suspect]
     Active Substance: ETOPOSIDE
     Dosage: 160 MG, CYCLE
     Route: 042
     Dates: start: 20141011

REACTIONS (3)
  - Anaemia [Recovering/Resolving]
  - Product use issue [Unknown]
  - Neuroendocrine carcinoma [Unknown]

NARRATIVE: CASE EVENT DATE: 20140909
